FAERS Safety Report 7561094-8 (Version None)
Quarter: 2011Q2

REPORT INFORMATION
  Report Type: 
  Country: None (occurrence: None)
  Receive Date: 20110621
  Receipt Date: 20110616
  Transmission Date: 20111010
  Serious: Yes (Death, Other)
  Sender: FDA-Public Use
  Company Number: US-PFIZER INC-2010006427

PATIENT
  Sex: Male

DRUGS (1)
  1. CHANTIX [Suspect]
     Indication: SMOKING CESSATION THERAPY
     Dosage: 0.5 AND 1MG
     Dates: start: 20070701

REACTIONS (3)
  - GUN SHOT WOUND [None]
  - COMPLETED SUICIDE [None]
  - ABNORMAL BEHAVIOUR [None]
